FAERS Safety Report 14365249 (Version 1)
Quarter: 2018Q1

REPORT INFORMATION
  Report Type: Spontaneous
  Country: FR (occurrence: FR)
  Receive Date: 20180108
  Receipt Date: 20180108
  Transmission Date: 20180509
  Serious: Yes (Hospitalization, Other)
  Sender: FDA-Public Use
  Company Number: FR-MERCK KGAA-2039603

PATIENT
  Age: 55 Year
  Sex: Female
  Weight: 50 kg

DRUGS (1)
  1. NOVOTHYROX [Suspect]
     Active Substance: LEVOTHYROXINE SODIUM
     Indication: HYPOTHYROIDISM
     Route: 048
     Dates: end: 20171201

REACTIONS (6)
  - Hyperhidrosis [Unknown]
  - Fatigue [Unknown]
  - Weight decreased [Unknown]
  - Suicide attempt [Unknown]
  - Muscle spasms [Unknown]
  - Nervousness [Unknown]

NARRATIVE: CASE EVENT DATE: 20170301
